FAERS Safety Report 9508607 (Version 2)
Quarter: 2014Q1

REPORT INFORMATION
  Report Type: Spontaneous
  Country: US (occurrence: None)
  Receive Date: 20130305
  Receipt Date: 20140306
  Transmission Date: 20141002
  Serious: Yes (Hospitalization, Disabling, Other)
  Sender: FDA-Public Use
  Company Number: 163-21880-11092114

PATIENT
  Age: 67 Year
  Sex: Male

DRUGS (3)
  1. REVLIMID [Suspect]
     Indication: PLASMA CELL MYELOMA
     Dosage: 25MG, 1 IN 1 D, PO
     Route: 048
     Dates: start: 201004, end: 20110422
  2. DECADRON (DEXAMETHASONE) (UNKNOWN) [Concomitant]
  3. VELCADE(BORTEZOMIB)(UNKNOWN) [Concomitant]

REACTIONS (3)
  - Leukopenia [None]
  - Platelet count decreased [None]
  - Neutrophil count decreased [None]
